FAERS Safety Report 10004434 (Version 1)
Quarter: 2014Q1

REPORT INFORMATION
  Report Type: Spontaneous
  Country: GB (occurrence: GB)
  Receive Date: 20140312
  Receipt Date: 20140312
  Transmission Date: 20141002
  Serious: Yes (Life-Threatening, Hospitalization, Disabling)
  Sender: FDA-Public Use
  Company Number: GB-MYLANLABS-2014S1004613

PATIENT
  Age: 74 Year
  Sex: Female

DRUGS (1)
  1. PRAMIPEXOLE [Suspect]
     Indication: RESTLESS LEGS SYNDROME
     Dosage: 0.18MG (1 OR 2 AT NIGHT)
     Route: 048
     Dates: start: 20100901, end: 20140101

REACTIONS (3)
  - Cerebrovascular accident [Unknown]
  - Obsessive-compulsive disorder [Unknown]
  - Pathological gambling [Unknown]
